FAERS Safety Report 5377749-X (Version None)
Quarter: 2007Q3

REPORT INFORMATION
  Report Type: 
  Country: None (occurrence: None)
  Receive Date: 20070703
  Receipt Date: 20070621
  Transmission Date: 20080115
  Serious: Yes (Other)
  Sender: FDA-Public Use
  Company Number: DE-PFIZER INC-2007051996

PATIENT
  Sex: Male
  Weight: 80 kg

DRUGS (1)
  1. CABERGOLINE [Suspect]
     Indication: PARKINSONISM
     Dosage: DAILY DOSE:4MG
     Route: 048
     Dates: start: 20040901, end: 20061231

REACTIONS (1)
  - SKIN NECROSIS [None]
